FAERS Safety Report 21533118 (Version 1)
Quarter: 2022Q4

REPORT INFORMATION
  Report Type: Spontaneous
  Country: PT (occurrence: PT)
  Receive Date: 20221101
  Receipt Date: 20221101
  Transmission Date: 20230113
  Serious: Yes (Other)
  Sender: FDA-Public Use
  Company Number: PT-KERNPHARMA-202201886

PATIENT
  Age: 30 Year
  Sex: Male

DRUGS (1)
  1. IBUPROFEN [Suspect]
     Active Substance: IBUPROFEN
     Indication: Toothache
     Dosage: 8/8 HOURS
     Route: 065

REACTIONS (2)
  - Acute kidney injury [Unknown]
  - Haemoglobinuria [Unknown]
